FAERS Safety Report 17279073 (Version 2)
Quarter: 2020Q1

REPORT INFORMATION
  Report Type: Spontaneous
  Country: JP (occurrence: JP)
  Receive Date: 20200116
  Receipt Date: 20200121
  Transmission Date: 20200409
  Serious: Yes (Hospitalization, Other)
  Sender: FDA-Public Use
  Company Number: JP-LUNDBECK-DKLU3006757

PATIENT
  Age: 15 Month
  Sex: Female
  Weight: 8 kg

DRUGS (23)
  1. SABRIL [Suspect]
     Active Substance: VIGABATRIN
     Dosage: 85.4 MG/KG/DAY (ACTUAL AMOUNT OF 700 MG/DAY)
     Route: 048
     Dates: start: 20190118, end: 20190123
  2. SABRIL [Suspect]
     Active Substance: VIGABATRIN
     Dosage: 100 MG/KG/DAY (ACTUAL AMOUNT OF 800 MG/DAY)
     Route: 048
     Dates: start: 20190703, end: 20190809
  3. SABRIL [Suspect]
     Active Substance: VIGABATRIN
     Dosage: 68.5 MG/KG/DAY (ACTUAL AMOUNT OF 500 MG/DAY)
     Route: 048
     Dates: start: 20181029, end: 20181101
  4. SABRIL [Suspect]
     Active Substance: VIGABATRIN
     Dosage: 62.5 MG/KG/DAY (ACTUAL AMOUNT OF 500 MG/DAY)
     Route: 048
     Dates: start: 20190810, end: 20191001
  5. SABRIL [Suspect]
     Active Substance: VIGABATRIN
     Dosage: 59.2 MG/KG/DAY (ACTUAL AMOUNT OF  450 MG/DAY)
     Route: 048
     Dates: start: 20181102, end: 20181121
  6. ESCRE [Concomitant]
     Active Substance: CHLORAL HYDRATE
     Indication: PROPHYLAXIS
     Route: 065
     Dates: start: 20190516, end: 20190516
  7. SABRIL [Suspect]
     Active Substance: VIGABATRIN
     Indication: INFANTILE SPASMS
     Dosage: 128.4 MG/KG/DAY (ACTUAL AMOUNT 1100 MG/DAY)
     Route: 048
     Dates: start: 20190322, end: 20190702
  8. SABRIL [Suspect]
     Active Substance: VIGABATRIN
     Dosage: 129.4 MG/KG/DAY (ACTUAL AMOUNT OF 1100 MG/DAY)
     Route: 048
     Dates: start: 20190222, end: 20190307
  9. MAGNESIUM OXIDE. [Concomitant]
     Active Substance: MAGNESIUM OXIDE
     Indication: PRODUCT USED FOR UNKNOWN INDICATION
     Route: 065
     Dates: start: 20181008, end: 20190809
  10. SABRIL [Suspect]
     Active Substance: VIGABATRIN
     Dosage: 117.6  MG/KG/DAY (ACTUAL AMOUNT OF 1000 MG/DAY)
     Route: 048
     Dates: start: 20190208, end: 20190221
  11. LEVETIRACETAM. [Concomitant]
     Active Substance: LEVETIRACETAM
     Indication: INFANTILE SPASMS
     Route: 065
     Dates: start: 20180929, end: 20190527
  12. TRICLORYL [Concomitant]
     Active Substance: TRICLOFOS SODIUM
     Indication: PROPHYLAXIS
     Route: 065
     Dates: start: 20190515, end: 20190809
  13. VALPROATE SODIUM. [Concomitant]
     Active Substance: VALPROATE SODIUM
     Indication: INFANTILE SPASMS
     Route: 065
     Dates: start: 20190925, end: 20191007
  14. SABRIL [Suspect]
     Active Substance: VIGABATRIN
     Dosage: 100 MG/KG/DAY (ACTUAL AMOUNT OF  820 MG/DAY)
     Route: 048
     Dates: start: 20190124, end: 20190207
  15. SABRIL [Suspect]
     Active Substance: VIGABATRIN
     Dosage: 116.3 MG/KG/DAY (ACTUAL AMOUNT OF 1000 MG/DAY)
     Route: 048
     Dates: start: 20190308, end: 20190321
  16. MYSTAN [Concomitant]
     Active Substance: CLOBAZAM
     Indication: INFANTILE SPASMS
     Route: 065
     Dates: start: 20190827
  17. CLOPERASTINE HYDROCHLORIDE [Concomitant]
     Active Substance: CLOPERASTINE HYDROCHLORIDE
     Indication: PRODUCT USED FOR UNKNOWN INDICATION
     Route: 065
     Dates: start: 20181023
  18. TOPIRAMATE. [Concomitant]
     Active Substance: TOPIRAMATE
     Indication: INFANTILE SPASMS
     Route: 065
     Dates: start: 20190308, end: 20190514
  19. SABRIL [Suspect]
     Active Substance: VIGABATRIN
     Dosage: 62.5 MG/KG/DAY (ACTUAL AMOUNT OF  500 MG/DAY)
     Route: 048
     Dates: start: 20181122, end: 20181202
  20. E KEPPRA [Concomitant]
     Active Substance: LEVETIRACETAM
     Indication: INFANTILE SPASMS
     Route: 065
     Dates: start: 20190528
  21. SABRIL [Suspect]
     Active Substance: VIGABATRIN
     Dosage: 47.7 MG/KG/DAY (ACTUAL AMOUNT 350 MG/DAY)
     Route: 048
     Dates: start: 20181016, end: 20181028
  22. SABRIL [Suspect]
     Active Substance: VIGABATRIN
     Dosage: 68 MG/KG/DAY (ACTUAL AMOUNT OF 550 MG/DAY)
     Route: 048
     Dates: start: 20181203, end: 20190117
  23. SABRIL [Suspect]
     Active Substance: VIGABATRIN
     Dosage: 29.8 MG/KG/DAY (ACTUAL AMOUNT OF 250 MG/DAY)
     Route: 048
     Dates: start: 20191002, end: 20191005

REACTIONS (5)
  - Bronchitis [Recovering/Resolving]
  - Upper respiratory tract inflammation [Recovered/Resolved]
  - Magnetic resonance imaging brain abnormal [Recovering/Resolving]
  - Constipation [Recovering/Resolving]
  - Asthma [Recovering/Resolving]

NARRATIVE: CASE EVENT DATE: 20190419
